FAERS Safety Report 4846145-3 (Version None)
Quarter: 2005Q4

REPORT INFORMATION
  Report Type: 
  Country: None (occurrence: None)
  Receive Date: 20051206
  Receipt Date: 20051123
  Transmission Date: 20060501
  Serious: Yes (Other)
  Sender: FDA-Public Use
  Company Number: 2005UW17875

PATIENT
  Age: 48 Year
  Sex: Female

DRUGS (3)
  1. ARIMIDEX [Suspect]
     Indication: BREAST CANCER
     Route: 048
     Dates: start: 20050902, end: 20051024
  2. DONAREM [Concomitant]
     Indication: DEPRESSION
     Route: 048
     Dates: start: 20051013, end: 20051023
  3. DONAREM [Concomitant]
     Route: 048
     Dates: start: 20051024, end: 20051118

REACTIONS (13)
  - ANAL DISCOMFORT [None]
  - BLISTER [None]
  - BLOOD URINE PRESENT [None]
  - BRONCHITIS [None]
  - HAEMATOCHEZIA [None]
  - INSOMNIA [None]
  - RHINOTRACHEITIS [None]
  - STEVENS-JOHNSON SYNDROME [None]
  - THROMBOSIS [None]
  - URETHRAL DISORDER [None]
  - URETHRITIS [None]
  - VULVOVAGINAL DISCOMFORT [None]
  - VULVOVAGINAL DRYNESS [None]
